FAERS Safety Report 9692544 (Version 1)
Quarter: 2013Q4

REPORT INFORMATION
  Report Type: Spontaneous
  Country: US (occurrence: US)
  Receive Date: 20131118
  Receipt Date: 20131118
  Transmission Date: 20140711
  Serious: Yes (Other)
  Sender: FDA-Public Use
  Company Number: US-BAYER-2013-139747

PATIENT
  Age: 40 Year
  Sex: Female

DRUGS (12)
  1. YAZ [Suspect]
     Dosage: UNK
     Route: 048
  2. YASMIN [Suspect]
     Dosage: UNK
     Route: 048
  3. WELLBUTRIN [Concomitant]
     Dosage: 150 MG, UNK
  4. ACIPHEX [Concomitant]
     Dosage: UNK
  5. TYLENOL ES [Concomitant]
     Dosage: 650 MG, UNK
  6. CELEBREX [Concomitant]
     Dosage: 200 MG, UNK
  7. AZITHROMYCIN [Concomitant]
     Dosage: 250 MG, UNK
  8. PSEUDOVENT [Concomitant]
     Dosage: UNK
  9. CEPHALEXIN [Concomitant]
     Dosage: 500 MG, UNK
  10. MEPERIDINE [Concomitant]
     Dosage: 50 MG, UNK
  11. ONDANSETRON [Concomitant]
     Dosage: 4 MG, UNK
  12. NABUMETONE [Concomitant]
     Dosage: 500 MG, UNK

REACTIONS (1)
  - Deep vein thrombosis [None]
